FAERS Safety Report 8623334-3 (Version None)
Quarter: 2012Q3

REPORT INFORMATION
  Report Type: 
  Country: None (occurrence: None)
  Receive Date: 20120827
  Receipt Date: 20120814
  Transmission Date: 20120928
  Serious: Yes (Hospitalization, Other)
  Sender: FDA-Public Use
  Company Number: BE-CELGENEUS-013-21880-11103541

PATIENT
  Sex: Male
  Weight: 102 kg

DRUGS (21)
  1. REVLIMID [Suspect]
     Indication: MULTIPLE MYELOMA
     Dosage: 25 MILLIGRAM
     Route: 048
     Dates: start: 20111017, end: 20111025
  2. DEXAMETHASONE [Concomitant]
     Route: 048
     Dates: start: 20111115, end: 20111204
  3. DEXAMETHASONE [Concomitant]
     Indication: MULTIPLE MYELOMA
     Route: 048
     Dates: start: 20111017, end: 20111114
  4. RANITIDINE [Concomitant]
     Indication: PROPHYLAXIS
     Dosage: 150 MILLIGRAM
     Route: 048
     Dates: start: 20111023
  5. BISOPROLOL FUMARATE [Concomitant]
     Dosage: 10 MILLIGRAM
     Route: 048
  6. BISOPROLOL FUMARATE [Concomitant]
     Dosage: 10 MILLIGRAM
     Route: 048
  7. REVLIMID [Suspect]
     Dosage: 25 MILLIGRAM
     Route: 048
     Dates: start: 20120211, end: 20120302
  8. REVLIMID [Suspect]
     Dosage: 25 MILLIGRAM
     Route: 048
     Dates: start: 20120315, end: 20120404
  9. REVLIMID [Suspect]
     Dosage: 25 MILLIGRAM
     Route: 048
     Dates: start: 20111105, end: 20111125
  10. CRESTOR [Concomitant]
     Dosage: 10 MILLIGRAM
     Route: 048
  11. ADRIAMYCIN PFS [Concomitant]
     Indication: MULTIPLE MYELOMA
     Route: 041
     Dates: start: 20111017, end: 20111017
  12. REVLIMID [Suspect]
     Dosage: 25 MILLIGRAM
     Route: 048
     Dates: start: 20111223, end: 20120112
  13. REVLIMID [Suspect]
     Dosage: 25 MILLIGRAM
     Route: 048
     Dates: start: 20120120, end: 20120131
  14. DEXAMETHASONE [Concomitant]
     Route: 048
     Dates: start: 20120103, end: 20120131
  15. ADRIAMYCIN PFS [Concomitant]
     Route: 041
     Dates: start: 20111205, end: 20111205
  16. ADRIAMYCIN PFS [Concomitant]
     Route: 041
     Dates: start: 20120119, end: 20120119
  17. HEPARIN SODIUM [Concomitant]
     Indication: PROPHYLAXIS
     Route: 065
  18. ASPIRIN [Concomitant]
     Dosage: 80 MILLIGRAM
     Route: 048
  19. REVLIMID [Suspect]
     Dosage: 25 MILLIGRAM
     Route: 048
     Dates: start: 20111203, end: 20111210
  20. DEXAMETHASONE [Concomitant]
     Route: 048
     Dates: start: 20111205, end: 20120102
  21. PERINDOPRIL ERBUMINE [Concomitant]
     Dosage: 10 MILLIGRAM
     Route: 048
     Dates: start: 20120201

REACTIONS (4)
  - LEFT VENTRICULAR DYSFUNCTION [None]
  - PNEUMONIA [None]
  - CYTOLYTIC HEPATITIS [None]
  - LUNG DISORDER [None]
